FAERS Safety Report 20415291 (Version 4)
Quarter: 2024Q3

REPORT INFORMATION
  Report Type: Spontaneous
  Country: TR (occurrence: TR)
  Receive Date: 20220202
  Receipt Date: 20240827
  Transmission Date: 20241017
  Serious: Yes (Other)
  Sender: STRIDES
  Company Number: TR-STRIDES ARCOLAB LIMITED-2022SP000883

PATIENT
  Age: 53 Year
  Sex: Male

DRUGS (6)
  1. ETOPOSIDE [Suspect]
     Active Substance: ETOPOSIDE
     Indication: Testicular seminoma (pure)
     Dosage: UNK; BEP PROTOCOL
     Route: 065
  2. ETOPOSIDE [Suspect]
     Active Substance: ETOPOSIDE
     Indication: Testicular seminoma (pure) stage II
  3. CISPLATIN [Suspect]
     Active Substance: CISPLATIN
     Indication: Testicular seminoma (pure)
     Dosage: UNK, BEP PROTOCOL
     Route: 065
  4. CISPLATIN [Suspect]
     Active Substance: CISPLATIN
     Indication: Testicular seminoma (pure) stage II
  5. BLEOMYCIN [Suspect]
     Active Substance: BLEOMYCIN SULFATE
     Indication: Testicular seminoma (pure)
     Dosage: UNK, BEP PROTOCOL
     Route: 065
  6. BLEOMYCIN [Suspect]
     Active Substance: BLEOMYCIN SULFATE
     Indication: Testicular seminoma (pure) stage II

REACTIONS (1)
  - Pulmonary toxicity [Recovered/Resolved]
